FAERS Safety Report 14152185 (Version 1)
Quarter: 2017Q4

REPORT INFORMATION
  Report Type: Spontaneous
  Country: IT (occurrence: IT)
  Receive Date: 20171102
  Receipt Date: 20171102
  Transmission Date: 20180321
  Serious: Yes (Hospitalization)
  Sender: FDA-Public Use
  Company Number: IT-JNJFOC-20130518932

PATIENT
  Age: 20 Year
  Sex: Male

DRUGS (3)
  1. OKI [Suspect]
     Active Substance: KETOPROFEN LYSINE
     Indication: ARTHRALGIA
     Route: 048
     Dates: start: 20130205, end: 20130205
  2. SINECOD [Suspect]
     Active Substance: BUTAMIRATE CITRATE
     Indication: OROPHARYNGEAL PAIN
     Route: 048
     Dates: start: 20130206, end: 20130207
  3. IBUPROFEN. [Suspect]
     Active Substance: IBUPROFEN
     Indication: OROPHARYNGEAL PAIN
     Route: 048
     Dates: start: 20130206, end: 20130207

REACTIONS (2)
  - Pruritus [Recovering/Resolving]
  - Purpura [Recovering/Resolving]

NARRATIVE: CASE EVENT DATE: 20130207
